FAERS Safety Report 8777226 (Version 1)
Quarter: 2012Q4

REPORT INFORMATION
  Report Type: 
  Country: JP (occurrence: JP)
  Receive Date: 20120911
  Receipt Date: 20120911
  Transmission Date: 20130627
  Serious: Yes (Hospitalization, Disabling)
  Sender: FDA-Public Use
  Company Number: JP-AMGEN-JPNCT2012056910

PATIENT
  Age: 87 Year
  Sex: Male
  Weight: 52 kg

DRUGS (14)
  1. DARBEPOETIN ALFA [Suspect]
     Indication: NEPHROGENIC ANAEMIA
     Dosage: 60 mug, qd
     Route: 058
     Dates: start: 20110825
  2. DARBEPOETIN ALFA [Suspect]
     Dosage: 120 mug, qd
     Route: 058
     Dates: start: 20110927, end: 20110927
  3. DARBEPOETIN ALFA [Suspect]
     Dosage: 60 mug, qd
     Route: 058
     Dates: start: 20111020, end: 20120112
  4. DARBEPOETIN ALFA [Suspect]
     Dosage: 60 mug, qd
     Route: 058
     Dates: start: 20120223
  5. LASIX [Concomitant]
     Dosage: UNK
     Route: 048
  6. HALFDIGOXIN [Concomitant]
     Dosage: UNK
     Route: 048
  7. CONIEL [Concomitant]
     Dosage: UNK
     Route: 048
  8. BLOPRESS [Concomitant]
     Dosage: UNK
     Route: 048
  9. ZYLORIC [Concomitant]
     Dosage: UNK
     Route: 048
  10. KALIMATE [Concomitant]
     Dosage: UNK
     Route: 048
  11. MAGMITT [Concomitant]
     Dosage: UNK
     Route: 048
  12. PURSENNID [Concomitant]
     Dosage: UNK
     Route: 048
  13. ARTIST [Concomitant]
     Dosage: UNK
     Route: 048
  14. WARFARIN [Concomitant]
     Dosage: UNK
     Route: 048

REACTIONS (1)
  - Sick sinus syndrome [Recovered/Resolved]
